FAERS Safety Report 10601908 (Version 1)
Quarter: 2014Q4

REPORT INFORMATION
  Report Type: Spontaneous
  Country: GB (occurrence: None)
  Receive Date: 20141120
  Receipt Date: 20141120
  Transmission Date: 20150529
  Serious: Yes (Other)
  Sender: FDA-Public Use
  Company Number: VAL_03582_2014

PATIENT
  Age: 36 Year
  Sex: Female

DRUGS (2)
  1. IMPLANON [Suspect]
     Active Substance: ETONOGESTREL
     Indication: CONTRACEPTION
     Dosage: DF
     Route: 059
  2. CARBAMAZEPINE (CARBAMAZEPINE) [Suspect]
     Active Substance: CARBAMAZEPINE
     Indication: SEIZURE
     Dosage: DF

REACTIONS (4)
  - Ectopic pregnancy [None]
  - Menstruation irregular [None]
  - Pregnancy with contraceptive device [None]
  - Gastroenteritis [None]
